FAERS Safety Report 6154108-3 (Version None)
Quarter: 2009Q2

REPORT INFORMATION
  Report Type: 
  Country: None (occurrence: None)
  Receive Date: 20090414
  Receipt Date: 20090408
  Transmission Date: 20091009
  Serious: Yes (Death)
  Sender: FDA-Public Use
  Company Number: JP-ROCHE-626925

PATIENT
  Sex: Female

DRUGS (2)
  1. XELODA [Suspect]
     Indication: BREAST CANCER
     Dosage: DRUG: XELODA 300
     Route: 048
  2. TAXOL [Concomitant]
     Route: 041

REACTIONS (1)
  - DISEASE PROGRESSION [None]
